FAERS Safety Report 9283727 (Version 1)
Quarter: 2013Q2

REPORT INFORMATION
  Report Type: Spontaneous
  Country: BR (occurrence: BR)
  Receive Date: 20130510
  Receipt Date: 20130510
  Transmission Date: 20140414
  Serious: Yes (Hospitalization)
  Sender: FDA-Public Use
  Company Number: BR-GLAXOSMITHKLINE-B0890179A

PATIENT
  Age: 34 Year
  Sex: Male

DRUGS (5)
  1. RYTHMOL [Suspect]
     Indication: ARRHYTHMIA
     Dosage: 300MG TWICE PER DAY
     Route: 048
     Dates: start: 201210
  2. RYTHMOL [Suspect]
     Indication: ARRHYTHMIA
     Dosage: 750MG PER DAY
     Route: 048
  3. SOTALOL [Concomitant]
     Indication: ARRHYTHMIA
     Dosage: 480MG PER DAY
     Dates: start: 2006
  4. VALSARTAN [Concomitant]
     Indication: CARDIOVASCULAR EVENT PROPHYLAXIS
     Dosage: 80MG IN THE MORNING
     Route: 048
     Dates: start: 201303
  5. ACETYLSALICYLIC ACID [Concomitant]
     Indication: COAGULOPATHY
     Dosage: 100MG PER DAY
     Route: 048

REACTIONS (2)
  - Cardiac ablation [Recovering/Resolving]
  - Arrhythmia [Recovering/Resolving]
